FAERS Safety Report 5094062-9 (Version None)
Quarter: 2006Q3

REPORT INFORMATION
  Report Type: 
  Country: None (occurrence: None)
  Receive Date: 20060728
  Receipt Date: 20060606
  Transmission Date: 20061208
  Serious: No
  Sender: FDA-Public Use
  Company Number: 253930

PATIENT
  Age: 44 Year
  Sex: Female
  Weight: 61.7 kg

DRUGS (4)
  1. LEVEMIR [Suspect]
     Indication: DIABETES MELLITUS INSULIN-DEPENDENT
     Dosage: 26 IU, QD, SUBCUTANEOUS
     Route: 058
     Dates: start: 20060524, end: 20060605
  2. NOVOLOG [Concomitant]
  3. MULTIPLE VITAMINS (VITAMIN B NOS, TOCOPHEROL, RETINOL, FOLIC ACID, ERG [Concomitant]
  4. BAYER ASPIRIN (ACETYLSALICYCLIC ACID) [Concomitant]

REACTIONS (1)
  - DIABETIC KETOACIDOSIS [None]
